FAERS Safety Report 24745249 (Version 1)
Quarter: 2024Q4

REPORT INFORMATION
  Report Type: Spontaneous
  Country: CN (occurrence: CN)
  Receive Date: 20241217
  Receipt Date: 20241217
  Transmission Date: 20250114
  Serious: Yes (Hospitalization, Other)
  Sender: BEIGENE
  Company Number: CN-BEIGENE-BGN-2024-019985

PATIENT

DRUGS (1)
  1. TISLELIZUMAB [Suspect]
     Active Substance: TISLELIZUMAB
     Indication: Lung neoplasm malignant
     Dosage: 200 MILLIGRAM, Q3WK D1
     Route: 041
     Dates: start: 20241013

REACTIONS (4)
  - Rib fracture [Unknown]
  - Immune-mediated lung disease [Recovering/Resolving]
  - Rash erythematous [Recovering/Resolving]
  - Skin striae [Recovering/Resolving]

NARRATIVE: CASE EVENT DATE: 20241017
